FAERS Safety Report 6723256-9 (Version None)
Quarter: 2010Q2

REPORT INFORMATION
  Report Type: 
  Country: None (occurrence: None)
  Receive Date: 20100513
  Receipt Date: 20100503
  Transmission Date: 20101027
  Serious: Yes (Death, Hospitalization, Other)
  Sender: FDA-Public Use
  Company Number: BR-ABBOTT-09P-020-0608797-00

PATIENT
  Sex: Male
  Weight: 68 kg

DRUGS (7)
  1. DEPAKENE [Suspect]
     Indication: CONVULSION PROPHYLAXIS
     Dosage: 2 X 500MG EVERY 12 HOURS
     Route: 048
     Dates: start: 20081201
  2. DEPAKENE [Suspect]
     Dosage: 5 X 500MG TABLETS EVERY DAY
     Route: 048
  3. DEXAMETHASONE [Concomitant]
     Indication: BRAIN OEDEMA
     Dosage: 3 X 4MG EVERY DAY
     Route: 048
  4. DEXAMETHASONE [Concomitant]
     Indication: PROPHYLAXIS
  5. PHENOBARBITAL [Concomitant]
     Indication: CONVULSION
     Route: 048
  6. QUETIAPINE FUMARATE [Concomitant]
     Indication: INSOMNIA
     Route: 048
  7. OMEPRAZOLE [Concomitant]
     Indication: DRUG USE FOR UNKNOWN INDICATION

REACTIONS (3)
  - ACUTE RESPIRATORY FAILURE [None]
  - CONVULSION [None]
  - LOSS OF CONSCIOUSNESS [None]
